FAERS Safety Report 12775040 (Version 1)
Quarter: 2016Q3

REPORT INFORMATION
  Report Type: Spontaneous
  Country: US (occurrence: US)
  Receive Date: 20160921
  Receipt Date: 20160921
  Transmission Date: 20161109
  Serious: Yes (Hospitalization)
  Sender: FDA-Public Use
  Company Number: None

PATIENT
  Age: 68 Year
  Sex: Female

DRUGS (4)
  1. IMATINIB MES TAB 400MG [Suspect]
     Active Substance: IMATINIB
     Indication: GASTROOESOPHAGEAL REFLUX DISEASE
     Route: 048
  2. IMATINIB MES TAB 400MG [Suspect]
     Active Substance: IMATINIB
     Indication: RHINITIS ALLERGIC
     Route: 048
  3. IMATINIB MES TAB 400MG [Suspect]
     Active Substance: IMATINIB
     Indication: CONNECTIVE TISSUE NEOPLASM
     Route: 048
  4. IMATINIB MES TAB 400MG [Suspect]
     Active Substance: IMATINIB
     Indication: ASTHMA
     Route: 048

REACTIONS (1)
  - Febrile neutropenia [None]

NARRATIVE: CASE EVENT DATE: 20160830
